FAERS Safety Report 11760871 (Version 1)
Quarter: 2015Q4

REPORT INFORMATION
  Report Type: Spontaneous
  Country: US (occurrence: US)
  Receive Date: 20151120
  Receipt Date: 20151120
  Transmission Date: 20160304
  Serious: No
  Sender: FDA-Public Use
  Company Number: US-ELI_LILLY_AND_COMPANY-US201212000428

PATIENT
  Sex: Female

DRUGS (2)
  1. FORTEO [Suspect]
     Active Substance: TERIPARATIDE
     Dosage: 20 UG, QD
  2. FORTEO [Suspect]
     Active Substance: TERIPARATIDE
     Indication: BRAIN NEOPLASM
     Dosage: 20 UG, QD
     Dates: start: 201011

REACTIONS (7)
  - Joint injury [Unknown]
  - Balance disorder [Not Recovered/Not Resolved]
  - Diabetes insipidus [Unknown]
  - Fall [Recovered/Resolved]
  - Off label use [Unknown]
  - Gait disturbance [Unknown]
  - Dizziness [Unknown]
